FAERS Safety Report 8176289-2 (Version None)
Quarter: 2012Q1

REPORT INFORMATION
  Report Type: 
  Country: None (occurrence: None)
  Receive Date: 20120301
  Receipt Date: 20120220
  Transmission Date: 20120608
  Serious: Yes (Hospitalization)
  Sender: FDA-Public Use
  Company Number: US-BRISTOL-MYERS SQUIBB COMPANY-16409914

PATIENT
  Age: 59 Year
  Sex: Male

DRUGS (5)
  1. PRAVASTATIN SODIUM [Suspect]
  2. DABIGATRAN ETEXILATE [Suspect]
     Dosage: 1DF: 30 TABS, 150MG
  3. ENALAPRIL MALEATE [Suspect]
  4. PROPAFENONE HCL [Suspect]
  5. SILDENAFIL [Suspect]
     Dosage: 1DF: 6 TABS, 100MG

REACTIONS (3)
  - SUICIDE ATTEMPT [None]
  - INTENTIONAL OVERDOSE [None]
  - ELECTROCARDIOGRAM QRS COMPLEX PROLONGED [None]
